FAERS Safety Report 4893551-7 (Version None)
Quarter: 2006Q1

REPORT INFORMATION
  Report Type: 
  Country: None (occurrence: None)
  Receive Date: 20060124
  Receipt Date: 20060112
  Transmission Date: 20060701
  Serious: Yes (Death)
  Sender: FDA-Public Use
  Company Number: HQWYE026715DEC05

PATIENT
  Age: 77 Year
  Sex: Female

DRUGS (4)
  1. MYLOTARG [Suspect]
     Indication: ACUTE MYELOID LEUKAEMIA
     Dosage: 9 MG/M^2 1X PER 1 DAY
     Route: 041
     Dates: start: 20051122, end: 20051122
  2. AMLODIPINE BESYLATE [Concomitant]
  3. BEPRIDIL HYDROCHLORIDE MONOHYDRATE [Concomitant]
  4. DIOVAN [Concomitant]

REACTIONS (11)
  - ACUTE MYELOID LEUKAEMIA [None]
  - BLOOD PRESSURE DIASTOLIC DECREASED [None]
  - BODY TEMPERATURE DECREASED [None]
  - CONTUSION [None]
  - DISEASE PROGRESSION [None]
  - DRUG INEFFECTIVE [None]
  - FALL [None]
  - HEAD INJURY [None]
  - NEUTROPHIL COUNT DECREASED [None]
  - PLATELET COUNT DECREASED [None]
  - SUBDURAL HAEMATOMA [None]
